FAERS Safety Report 8921419 (Version 1)
Quarter: 2012Q4

REPORT INFORMATION
  Report Type: 
  Country: JP (occurrence: JP)
  Receive Date: 20121121
  Receipt Date: 20121121
  Transmission Date: 20130627
  Serious: Yes (Life-Threatening, Hospitalization)
  Sender: FDA-Public Use
  Company Number: JP-ROCHE-910900001001

PATIENT
  Age: 65 Year
  Sex: Male
  Weight: 64 kg

DRUGS (4)
  1. ROCEPHIN [Suspect]
     Indication: INFECTION
     Route: 042
     Dates: start: 19901115, end: 19901119
  2. EXACIN [Interacting]
     Indication: INFECTION
     Route: 042
     Dates: start: 19901115, end: 19901119
  3. VITAMEDIN INTRAVENOUS [Concomitant]
     Indication: NUTRITIONAL SUPPORT
     Route: 042
  4. PANTOL [Concomitant]
     Indication: NUTRITIONAL SUPPORT
     Route: 042

REACTIONS (14)
  - Renal failure acute [Recovered/Resolved]
  - Hepatic function abnormal [Recovered/Resolved]
  - Jaundice [Recovered/Resolved]
  - Ileus [None]
  - Diarrhoea [None]
  - Dehydration [None]
  - Hepatic failure [None]
  - Brain injury [None]
  - Hyponatraemia [None]
  - Ventricular extrasystoles [None]
  - Tremor [None]
  - Apnoea [None]
  - Ammonia increased [None]
  - Hypersensitivity [None]
